FAERS Safety Report 21929334 (Version 1)
Quarter: 2023Q1

REPORT INFORMATION
  Report Type: Spontaneous
  Country: US (occurrence: US)
  Receive Date: 20230131
  Receipt Date: 20230131
  Transmission Date: 20230418
  Serious: No
  Sender: FDA-Public Use
  Company Number: US-JAZZ-2022-US-003411

PATIENT
  Age: 31 Year
  Sex: Male

DRUGS (4)
  1. XYREM [Suspect]
     Active Substance: SODIUM OXYBATE
     Indication: Mucolipidosis type I
     Dosage: 1 GRAM
  2. XYREM [Suspect]
     Active Substance: SODIUM OXYBATE
     Indication: Off label use
  3. CLONAZEPAM [Concomitant]
     Active Substance: CLONAZEPAM
     Indication: Product used for unknown indication
     Dosage: UNKNOWN DOSE
  4. LEVETIRACETAM [Suspect]
     Active Substance: LEVETIRACETAM
     Indication: Generalised tonic-clonic seizure
     Dosage: UNKNOWN DOSE

REACTIONS (1)
  - No adverse event [Unknown]
